FAERS Safety Report 6259793-3 (Version None)
Quarter: 2009Q3

REPORT INFORMATION
  Report Type: 
  Country: None (occurrence: None)
  Receive Date: 20090708
  Receipt Date: 20090630
  Transmission Date: 20100115
  Serious: Yes (Other)
  Sender: FDA-Public Use
  Company Number: US-AMGEN-QUU351666

PATIENT
  Sex: Male
  Weight: 96.7 kg

DRUGS (26)
  1. ENBREL [Suspect]
     Indication: RHEUMATOID ARTHRITIS
     Route: 058
     Dates: start: 20011201
  2. OXYCONTIN [Concomitant]
  3. MORPHINE [Concomitant]
     Route: 048
  4. CITALOPRAM HYDROBROMIDE [Concomitant]
  5. OXYGEN [Concomitant]
  6. ESZOPICLONE [Concomitant]
  7. ACETAMINOPHEN [Concomitant]
  8. LORAZEPAM [Concomitant]
  9. LANTUS [Concomitant]
     Route: 058
  10. OXYCODONE HCL AND ACETAMINOPHEN [Concomitant]
  11. VICODIN [Concomitant]
  12. ALBUTEROL [Concomitant]
     Route: 055
  13. METRONIDAZOLE [Concomitant]
     Route: 061
  14. SPIRIVA [Concomitant]
     Route: 055
  15. ZOLPIDEM [Concomitant]
  16. ERGOCALCIFEROL [Concomitant]
  17. LEVOTHYROXINE SODIUM [Concomitant]
     Route: 048
  18. CARVEDILOL [Concomitant]
     Route: 048
  19. SPIRONOLACTONE [Concomitant]
     Route: 048
  20. FUROSEMIDE [Concomitant]
     Route: 048
  21. AMLODIPINE [Concomitant]
     Route: 048
  22. FEXOFENADINE [Concomitant]
     Route: 048
  23. IRBESARTAN [Concomitant]
     Route: 048
  24. METFORMIN HCL [Concomitant]
  25. ASPIRIN [Concomitant]
  26. HYDROXYCHLOROQUINE SULFATE [Concomitant]

REACTIONS (5)
  - AMYOTROPHIC LATERAL SCLEROSIS [None]
  - DYSPNOEA [None]
  - LIVER FUNCTION TEST ABNORMAL [None]
  - NAUSEA [None]
  - WEIGHT DECREASED [None]
